FAERS Safety Report 10913931 (Version 1)
Quarter: 2015Q1

REPORT INFORMATION
  Report Type: Spontaneous
  Country: NO (occurrence: None)
  Receive Date: 20150310
  Receipt Date: 20150310
  Transmission Date: 20150721
  Serious: Yes (Hospitalization)
  Sender: FDA-Public Use
  Company Number: NO-20150009

PATIENT
  Age: 53 Year
  Sex: Male

DRUGS (2)
  1. DOTAREM [Suspect]
     Active Substance: GADOTERATE MEGLUMINE
     Indication: GASTROINTESTINAL DISORDER
     Dosage: NOT OTHERWISE SPECIFIED
     Route: 042
     Dates: start: 20150226, end: 20150226
  2. DOTAREM [Suspect]
     Active Substance: GADOTERATE MEGLUMINE
     Indication: NUCLEAR MAGNETIC RESONANCE IMAGING
     Dosage: NOT OTHERWISE SPECIFIED
     Route: 042
     Dates: start: 20150226, end: 20150226

REACTIONS (3)
  - Urticaria [None]
  - Respiratory disorder [None]
  - Sneezing [None]

NARRATIVE: CASE EVENT DATE: 20150226
